FAERS Safety Report 15251354 (Version 2)
Quarter: 2018Q4

REPORT INFORMATION
  Report Type: Spontaneous
  Country: US (occurrence: US)
  Receive Date: 20180807
  Receipt Date: 20181019
  Transmission Date: 20190204
  Serious: Yes (Other)
  Sender: FDA-Public Use
  Company Number: US-SA-2017SA252453

PATIENT
  Age: 71 Year
  Sex: Female
  Weight: 59 kg

DRUGS (13)
  1. DIOVAN [Concomitant]
     Active Substance: VALSARTAN
     Dosage: UNK
     Dates: start: 2010, end: 2015
  2. TRASTUZUMAB. [Concomitant]
     Active Substance: TRASTUZUMAB
  3. PALONOSETRON [PALONOSETRON HYDROCHLORIDE] [Concomitant]
  4. PEGFILGRASTIM [Concomitant]
     Active Substance: PEGFILGRASTIM
  5. PROTONIX [OMEPRAZOLE] [Concomitant]
     Dosage: UNK
     Dates: start: 2008, end: 2015
  6. CARBOPLATIN. [Concomitant]
     Active Substance: CARBOPLATIN
  7. MORPHINE SULFATE. [Concomitant]
     Active Substance: MORPHINE SULFATE
  8. DEXAMETHASONE. [Concomitant]
     Active Substance: DEXAMETHASONE
  9. SODIUM CHLORIDE. [Concomitant]
     Active Substance: SODIUM CHLORIDE
  10. DOCETAXEL. [Suspect]
     Active Substance: DOCETAXEL
     Dosage: 137 MG; 131 MG; 129 MG; 128 MG
     Route: 042
     Dates: start: 20150424, end: 20150424
  11. DOCETAXEL. [Suspect]
     Active Substance: DOCETAXEL
     Dosage: 137 MG; 131 MG; 129 MG; 128 MG
     Route: 042
     Dates: start: 20150109, end: 20150109
  12. POTASSIUM CHLORIDE. [Concomitant]
     Active Substance: POTASSIUM CHLORIDE
  13. METFORMIN [Concomitant]
     Active Substance: METFORMIN HYDROCHLORIDE
     Dosage: UNK
     Dates: start: 2008, end: 2015

REACTIONS (2)
  - Alopecia [Recovering/Resolving]
  - Psychological trauma [Unknown]

NARRATIVE: CASE EVENT DATE: 201510
